FAERS Safety Report 4520489-7 (Version None)
Quarter: 2004Q4

REPORT INFORMATION
  Report Type: 
  Country: None (occurrence: None)
  Receive Date: 20041203
  Receipt Date: 20041122
  Transmission Date: 20050328
  Serious: Yes (Hospitalization, Other)
  Sender: FDA-Public Use
  Company Number: 2004097725

PATIENT
  Sex: Female
  Weight: 54.4316 kg

DRUGS (3)
  1. DILANTIN [Suspect]
     Indication: CONVULSION
     Dosage: ORAL
     Route: 048
  2. CELEBREX [Suspect]
     Indication: OSTEOARTHRITIS
     Dosage: 200 MG, ORAL
     Route: 048
     Dates: start: 20000101
  3. OXCARBAZEPINE (OXCARBAZEPINE) [Suspect]
     Indication: CONVULSION
     Dosage: 200 MG (100 MG, 2 IN 1 D)
     Dates: start: 20041101

REACTIONS (14)
  - ABORTION SPONTANEOUS [None]
  - BRAIN OPERATION [None]
  - CEREBRAL HAEMORRHAGE [None]
  - CONVULSION [None]
  - DRUG EXPOSURE DURING PREGNANCY [None]
  - DRUG INEFFECTIVE [None]
  - FALL [None]
  - HAEMORRHAGE INTRACRANIAL [None]
  - HEAD INJURY [None]
  - LARGE FOR DATES BABY [None]
  - OSTEOARTHRITIS [None]
  - PREGNANCY [None]
  - SKULL FRACTURE [None]
  - TREATMENT NONCOMPLIANCE [None]
